FAERS Safety Report 5606701-1 (Version None)
Quarter: 2008Q1

REPORT INFORMATION
  Report Type: 
  Country: None (occurrence: None)
  Receive Date: 20080129
  Receipt Date: 20071105
  Transmission Date: 20080703
  Serious: Yes (Other)
  Sender: FDA-Public Use
  Company Number: US-BAUSCH-2007BL004028

PATIENT
  Age: 63 Year
  Sex: Female

DRUGS (3)
  1. FLUOCINOLONE ACETONIDE INTRAVITREAL IMPLANT (0.5 MG) [Suspect]
     Indication: UVEITIS
     Route: 047
     Dates: start: 20060515, end: 20070505
  2. FLUOCINOLONE ACETONIDE INTRAVITREAL IMPLANT (0.5 MG) [Suspect]
     Route: 047
     Dates: start: 20070329
  3. CELLCEPT /USA/ [Concomitant]
     Indication: UVEITIS
     Dates: start: 20070101

REACTIONS (2)
  - ENDOPHTHALMITIS [None]
  - WOUND COMPLICATION [None]
